FAERS Safety Report 23972225 (Version 1)
Quarter: 2024Q2

REPORT INFORMATION
  Report Type: Spontaneous
  Country: GB (occurrence: GB)
  Receive Date: 20240613
  Receipt Date: 20240613
  Transmission Date: 20240716
  Serious: Yes (Other)
  Sender: FDA-Public Use
  Company Number: None

PATIENT
  Age: 33 Year
  Sex: Female
  Weight: 57 kg

DRUGS (1)
  1. GADOBUTROL [Suspect]
     Active Substance: GADOBUTROL
     Indication: Magnetic resonance imaging pelvic
     Dosage: UNK, ONCE
     Dates: start: 20240516, end: 20240516

REACTIONS (5)
  - Brain fog [Recovered/Resolved]
  - Asthenia [Recovering/Resolving]
  - Back pain [Not Recovered/Not Resolved]
  - Chest pain [Recovered/Resolved]
  - Burning sensation [Recovering/Resolving]

NARRATIVE: CASE EVENT DATE: 20240518
